FAERS Safety Report 5250292-4 (Version None)
Quarter: 2007Q1

REPORT INFORMATION
  Report Type: 
  Country: None (occurrence: None)
  Receive Date: 20070228
  Receipt Date: 20060317
  Transmission Date: 20070707
  Serious: No
  Sender: FDA-Public Use
  Company Number: US-GLAXOSMITHKLINE-A0598057A

PATIENT
  Age: 48 Year
  Sex: Female

DRUGS (8)
  1. LAMICTAL [Suspect]
     Indication: BIPOLAR DISORDER
     Dosage: 300MG PER DAY
     Route: 048
     Dates: start: 20051001, end: 20060314
  2. SYNTHROID [Concomitant]
  3. GLUCOPHAGE [Concomitant]
  4. HAZOL [Concomitant]
  5. ALLOPURINOL SODIUM [Concomitant]
  6. VYTORIN [Concomitant]
  7. LITHIUM CARBONATE [Concomitant]
  8. XANAX [Concomitant]

REACTIONS (1)
  - MOUTH ULCERATION [None]
